FAERS Safety Report 5456583-6 (Version None)
Quarter: 2007Q3

REPORT INFORMATION
  Report Type: 
  Country: None (occurrence: None)
  Receive Date: 20070918
  Receipt Date: 20070330
  Transmission Date: 20080115
  Serious: Yes (Other)
  Sender: FDA-Public Use
  Company Number: US-ASTRAZENECA-2006UW25392

PATIENT
  Age: 29 Year
  Sex: Male
  Weight: 90 kg

DRUGS (6)
  1. SEROQUEL [Suspect]
     Indication: HALLUCINATION
     Route: 048
     Dates: start: 20020923, end: 20060901
  2. HALDOL [Concomitant]
     Dates: start: 20010101
  3. RISPERDAL [Concomitant]
     Dates: start: 20060101
  4. STELAZINE [Concomitant]
     Dates: start: 20010101
  5. THORAZINE [Concomitant]
     Dates: start: 20030101
  6. TRAZODONE HCL [Concomitant]
     Dates: start: 20030101, end: 20040101

REACTIONS (3)
  - DIABETES MELLITUS [None]
  - PANCREATITIS [None]
  - TARDIVE DYSKINESIA [None]
